FAERS Safety Report 10238421 (Version 1)
Quarter: 2014Q2

REPORT INFORMATION
  Report Type: Spontaneous
  Country: US (occurrence: None)
  Receive Date: 20140613
  Receipt Date: 20140613
  Transmission Date: 20141212
  Serious: Yes (Other)
  Sender: FDA-Public Use
  Company Number: None

PATIENT
  Sex: 0

DRUGS (3)
  1. HEPARIN [Suspect]
     Dates: start: 20140601, end: 20140612
  2. HEPARIN [Suspect]
     Dates: start: 20140601, end: 20140612
  3. HEPARIN [Concomitant]

REACTIONS (1)
  - Drug ineffective [None]
